FAERS Safety Report 9352773 (Version 1)
Quarter: 2013Q2

REPORT INFORMATION
  Report Type: Spontaneous
  Country: US (occurrence: None)
  Receive Date: 20130614
  Receipt Date: 20130614
  Transmission Date: 20140414
  Serious: Yes (Other)
  Sender: FDA-Public Use
  Company Number: None

PATIENT
  Age: 46 Year
  Sex: Male

DRUGS (5)
  1. FENTANYL [Suspect]
     Indication: ANALGESIC THERAPY
     Dosage: 1 PATCH, Q72 HRS.
     Route: 062
     Dates: start: 20130612, end: 20130613
  2. SULFAZINE [Concomitant]
  3. OXYCODONE [Concomitant]
  4. FENTANYL [Concomitant]
  5. CLOBETASOL [Concomitant]

REACTIONS (1)
  - Initial insomnia [None]
